FAERS Safety Report 20894211 (Version 1)
Quarter: 2022Q2

REPORT INFORMATION
  Report Type: Spontaneous
  Country: GB (occurrence: GB)
  Receive Date: 20220531
  Receipt Date: 20220531
  Transmission Date: 20220721
  Serious: Yes (Hospitalization, Other)
  Sender: FDA-Public Use
  Company Number: None

PATIENT
  Age: 90 Year
  Sex: Female

DRUGS (8)
  1. FUROSEMIDE [Suspect]
     Active Substance: FUROSEMIDE
     Indication: Product used for unknown indication
     Dosage: 40 MILLIGRAM, AM (ONE TO BE TAKEN EACH MORNING 28 TABLET --STOPPED LAST MONDAY BY GP)
     Dates: start: 20220131
  2. NITROFURANTOIN [Suspect]
     Active Substance: NITROFURANTOIN
     Indication: Product used for unknown indication
     Dosage: 100 MILLIGRAM, BID (MODIFIED-RELEASE CAPSULES ONE TO BE TAKEN TWICE A DAY 14 CAPSULE)
     Dates: start: 20220203
  3. CHOLECALCIFEROL [Concomitant]
     Active Substance: CHOLECALCIFEROL
     Dosage: UNK
     Dates: start: 20220202
  4. DOCUSATE [Concomitant]
     Active Substance: DOCUSATE
     Dosage: 100 MILLIGRAM, QD
  5. OXYCODONE [Concomitant]
     Active Substance: OXYCODONE
     Dosage: UNK UNK, TID (SUGAR FREE HALF A TEASPOON UP TO THREE TIMES A DAY. (2.5MG TDS) 250 ML
     Dates: start: 20220131
  6. ACETAMINOPHEN [Concomitant]
     Active Substance: ACETAMINOPHEN
     Dosage: 2 DOSAGE FORM, QID (TWO TO BE TAKEN EVERY 4-6 HOURS UP TO FOUR TIMES A DAY)
     Dates: start: 20220202
  7. CALCIUM CARBONATE\CHOLECALCIFEROL [Concomitant]
     Active Substance: CALCIUM CARBONATE\CHOLECALCIFEROL
     Dosage: 1 DOSAGE FORM, BID (ONE TO BE TAKEN TWICE DAILY  56 TABLET)
     Dates: start: 20220202
  8. SENNA [Concomitant]
     Active Substance: SENNA LEAF\SENNOSIDES\SENNOSIDES A AND B
     Dosage: 500 MILLILITER, PRN (SUGAR FREE 7.5 MG/5 ML TWO 5ML SPOONFULS TO BE TAKEN AT NIGHT) 12-NOV-2021

REACTIONS (1)
  - Acute kidney injury [Recovering/Resolving]
